FAERS Safety Report 7792613-4 (Version None)
Quarter: 2011Q4

REPORT INFORMATION
  Report Type: 
  Country: None (occurrence: None)
  Receive Date: 20111003
  Receipt Date: 20110923
  Transmission Date: 20120403
  Serious: Yes (Other)
  Sender: FDA-Public Use
  Company Number: AT-ABBOTT-11P-009-0859637-00

PATIENT
  Age: 69 Year
  Sex: Male

DRUGS (1)
  1. TRENANTONE (LEUPRORELIN ACETATE FOR DEPOT SUSPENSION) [Suspect]
     Indication: PROSTATE CANCER
     Route: 058
     Dates: start: 20100901

REACTIONS (1)
  - URINARY RETENTION [None]
